FAERS Safety Report 13143216 (Version 1)
Quarter: 2017Q1

REPORT INFORMATION
  Report Type: Spontaneous
  Country: US (occurrence: US)
  Receive Date: 20170124
  Receipt Date: 20170124
  Transmission Date: 20170428
  Serious: No
  Sender: FDA-Public Use
  Company Number: US-GLAXOSMITHKLINE-US2017006841

PATIENT
  Sex: Male

DRUGS (1)
  1. DICLOFENAC SODIUM GEL [Suspect]
     Active Substance: DICLOFENAC SODIUM
     Indication: ARTHRALGIA
     Dosage: UNK (FOR 2 MONTHS 3 TIMES A DAY )

REACTIONS (3)
  - Wrong technique in product usage process [Unknown]
  - Rash macular [Not Recovered/Not Resolved]
  - Inappropriate schedule of drug administration [Unknown]
